FAERS Safety Report 17243866 (Version 1)
Quarter: 2020Q1

REPORT INFORMATION
  Report Type: Spontaneous
  Country: US (occurrence: US)
  Receive Date: 20200107
  Receipt Date: 20200107
  Transmission Date: 20200409
  Serious: Yes (Other)
  Sender: FDA-Public Use
  Company Number: US-ROCHE-2313597

PATIENT
  Age: 72 Year
  Sex: Male
  Weight: 78.8 kg

DRUGS (3)
  1. ASPIRIN [ACETYLSALICYLIC ACID] [Concomitant]
     Active Substance: ASPIRIN
     Dosage: DAILY
     Route: 048
  2. ACTIVASE [Suspect]
     Active Substance: ALTEPLASE
     Indication: CEREBROVASCULAR ACCIDENT
     Route: 042
     Dates: start: 20180526, end: 20180526
  3. COREG [Concomitant]
     Active Substance: CARVEDILOL
     Route: 048

REACTIONS (3)
  - Urticaria [Recovered/Resolved with Sequelae]
  - Angioedema [Recovered/Resolved with Sequelae]
  - Dyspnoea [Recovered/Resolved with Sequelae]

NARRATIVE: CASE EVENT DATE: 20180526
